FAERS Safety Report 6180659-1 (Version None)
Quarter: 2009Q2

REPORT INFORMATION
  Report Type: 
  Country: None (occurrence: None)
  Receive Date: 20090504
  Receipt Date: 20090420
  Transmission Date: 20091009
  Serious: Yes (Death)
  Sender: FDA-Public Use
  Company Number: 2009-01210

PATIENT
  Age: 61 Year
  Sex: Male
  Weight: 75.4 kg

DRUGS (13)
  1. VELCADE [Suspect]
     Indication: MULTIPLE MYELOMA
     Dosage: 1.3 MG/M2, IV BOLUS
     Route: 040
     Dates: start: 20090313, end: 20090313
  2. DEXAMETHASONE TAB [Suspect]
     Indication: MULTIPLE MYELOMA
     Dosage: 20 MG, ORAL
     Route: 048
     Dates: start: 20090313, end: 20090314
  3. LENALIDOMIDE(LENALIDOMIDE) CAPSULE [Suspect]
     Indication: MULTIPLE MYELOMA
     Dosage: 25 MG, ORAL
     Route: 048
     Dates: start: 20090313, end: 20090315
  4. ASPIRIN [Concomitant]
  5. COREG [Concomitant]
  6. CELEXA [Concomitant]
  7. FISH OIL (FISH OIL) [Concomitant]
  8. HYDROCHLOROTHIAZIDE [Concomitant]
  9. IMDUR [Concomitant]
  10. MULTIVITAMIN [Concomitant]
  11. NITROQUICK (GLYCERYL TRINITRATE) [Concomitant]
  12. EXTRA STRENGTH TYLENOL [Concomitant]
  13. ZOCOR [Concomitant]

REACTIONS (1)
  - DEATH [None]
